FAERS Safety Report 24749442 (Version 1)
Quarter: 2024Q4

REPORT INFORMATION
  Report Type: Report from Study
  Country: ES (occurrence: ES)
  Receive Date: 20241218
  Receipt Date: 20241218
  Transmission Date: 20250114
  Serious: Yes (Hospitalization, Other)
  Sender: JOHNSON AND JOHNSON
  Company Number: ES-JNJFOC-20241247292

PATIENT

DRUGS (1)
  1. REMICADE [Suspect]
     Active Substance: INFLIXIMAB
     Indication: Inflammatory bowel disease
     Route: 041

REACTIONS (14)
  - Anaphylactic reaction [Unknown]
  - Infusion related reaction [Unknown]
  - Neutropenia [Unknown]
  - Lupus-like syndrome [Unknown]
  - Cutaneous vasculitis [Unknown]
  - Atypical pneumonia [Unknown]
  - Demyelination [Unknown]
  - Cardiac failure [Unknown]
  - Bacterial infection [Unknown]
  - Viral infection [Unknown]
  - Therapeutic response decreased [Unknown]
  - Psoriasis [Unknown]
  - Arthropathy [Unknown]
  - Nervous system disorder [Unknown]
